FAERS Safety Report 7079516-8 (Version None)
Quarter: 2010Q4

REPORT INFORMATION
  Report Type: 
  Country: None (occurrence: None)
  Receive Date: 20101102
  Receipt Date: 20101018
  Transmission Date: 20110411
  Serious: Yes (Hospitalization)
  Sender: FDA-Public Use
  Company Number: ES-AMGEN-US399196

PATIENT

DRUGS (13)
  1. BLINDED ETANERCEPT [Suspect]
     Indication: RHEUMATOID ARTHRITIS
     Dosage: 50 MG, QWK
     Route: 058
     Dates: start: 20080731, end: 20100221
  2. BLINDED PLACEBO [Suspect]
     Indication: RHEUMATOID ARTHRITIS
     Dosage: 50 MG, QWK
     Route: 058
     Dates: start: 20080731, end: 20100221
  3. METHYLPREDNISOLONE [Concomitant]
     Indication: RHEUMATOID ARTHRITIS
     Dosage: 4 MG, QD
     Route: 048
     Dates: start: 20030203, end: 20100222
  4. METFORMIN [Concomitant]
     Indication: DIABETES MELLITUS
     Dosage: UNK UNK, UNK
     Route: 065
     Dates: start: 20081024
  5. METFORMIN [Concomitant]
     Dosage: UNKNOWN
     Route: 065
     Dates: start: 20081024
  6. AMLODIPINE [Concomitant]
     Indication: HYPERTENSION
     Dosage: 5 MG, QD
     Route: 048
     Dates: start: 20090525, end: 20100222
  7. SIMVASTATIN [Concomitant]
     Indication: HYPERCHOLESTEROLAEMIA
     Dosage: 40 MG, QD
     Route: 048
     Dates: start: 20030908, end: 20100222
  8. SIMVASTATIN [Concomitant]
  9. VALSARTAN [Concomitant]
     Indication: HYPERTENSION
     Dosage: UNK UNK, UNK
     Route: 065
     Dates: start: 20090901, end: 20100222
  10. VALSARTAN [Concomitant]
     Dosage: UNKNOWN
     Route: 065
     Dates: start: 20090901, end: 20100222
  11. METHOTREXATE SODIUM [Concomitant]
     Indication: RHEUMATOID ARTHRITIS
     Dosage: 20 MG, QWK
     Route: 048
     Dates: start: 20060918, end: 20100221
  12. LANSOPRAZOLE [Concomitant]
     Indication: HIATUS HERNIA
     Dosage: 30 MG, QD
     Route: 048
     Dates: start: 20021007, end: 20100222
  13. LANSOPRAZOLE [Concomitant]

REACTIONS (3)
  - CONVULSION [None]
  - INTRACRANIAL PRESSURE INCREASED [None]
  - MUSCULAR WEAKNESS [None]
